FAERS Safety Report 18042824 (Version 1)
Quarter: 2020Q3

REPORT INFORMATION
  Report Type: Spontaneous
  Country: DE (occurrence: DE)
  Receive Date: 20200720
  Receipt Date: 20200720
  Transmission Date: 20201103
  Serious: Yes (Other)
  Sender: FDA-Public Use
  Company Number: DE-ACCORD-191641

PATIENT
  Age: 80 Year
  Sex: Female

DRUGS (23)
  1. METHOTREXATE. [Suspect]
     Active Substance: METHOTREXATE
     Indication: NEURODERMATITIS
  2. PIMECROLIMUS. [Suspect]
     Active Substance: PIMECROLIMUS
     Indication: NEURODERMATITIS
     Dosage: 10 MG/G
     Route: 061
  3. PREDNICARBATE. [Suspect]
     Active Substance: PREDNICARBATE
     Indication: NEURODERMATITIS
     Dosage: 2.5 MG/G
     Route: 061
  4. HYDROXYZINE [Concomitant]
     Active Substance: HYDROXYZINE HYDROCHLORIDE
     Indication: NEURODERMATITIS
  5. BETAMETHASONE. [Suspect]
     Active Substance: BETAMETHASONE
     Indication: DERMATITIS ATOPIC
     Route: 061
  6. CLOBETASOL [Suspect]
     Active Substance: CLOBETASOL
     Indication: DERMATITIS ATOPIC
     Dosage: 0.5 MG/G
     Route: 061
  7. CICLOSPORIN [Suspect]
     Active Substance: CYCLOSPORINE
     Indication: NEURODERMATITIS
     Dosage: ALSO 100 MG
  8. CICLOSPORIN [Suspect]
     Active Substance: CYCLOSPORINE
     Indication: NEURODERMATITIS
     Dosage: CYCLOSPORINE A
  9. GABAPENTIN. [Concomitant]
     Active Substance: GABAPENTIN
     Indication: NEURODERMATITIS
  10. NALTREXONE [Concomitant]
     Active Substance: NALTREXONE
     Indication: NEURODERMATITIS
  11. MOMETASONE [Suspect]
     Active Substance: MOMETASONE
     Indication: NEURODERMATITIS
     Dosage: 1 MG/G
     Route: 061
  12. PREDNISOLONE. [Suspect]
     Active Substance: PREDNISOLONE
     Indication: NEURODERMATITIS
     Route: 048
  13. MIRTAZAPINE. [Concomitant]
     Active Substance: MIRTAZAPINE
     Indication: ANTIDEPRESSANT THERAPY
  14. LAUROMACROGOL 400 [Concomitant]
     Active Substance: POLIDOCANOL
     Indication: NEURODERMATITIS
     Dosage: 30 MG/G
  15. DESLORATADINE. [Concomitant]
     Active Substance: DESLORATADINE
     Indication: NEURODERMATITIS
  16. PAROXETINE. [Concomitant]
     Active Substance: PAROXETINE
     Indication: ANTIDEPRESSANT THERAPY
  17. TACROLIMUS. [Suspect]
     Active Substance: TACROLIMUS
     Indication: NEURODERMATITIS
     Dosage: 1 MG/G
     Route: 061
  18. BETAMETHASONE. [Suspect]
     Active Substance: BETAMETHASONE
     Indication: NEURODERMATITIS
     Dosage: 1.2 MG/G
     Route: 061
  19. RITUXIMAB. [Suspect]
     Active Substance: RITUXIMAB
     Indication: CHRONIC LYMPHOCYTIC LEUKAEMIA
  20. CETIRIZINE [Concomitant]
     Active Substance: CETIRIZINE HYDROCHLORIDE
     Indication: NEURODERMATITIS
  21. NALOXONE [Concomitant]
     Active Substance: NALOXONE
     Indication: NEURODERMATITIS
     Route: 042
  22. GABAPENTIN. [Concomitant]
     Active Substance: GABAPENTIN
     Indication: NEURODERMATITIS
     Dosage: UP TO 900 MG/D
  23. BENDAMUSTINE/BENDAMUSTINE HYDROCHLORIDE [Suspect]
     Active Substance: BENDAMUSTINE HYDROCHLORIDE
     Indication: CHRONIC LYMPHOCYTIC LEUKAEMIA

REACTIONS (2)
  - Intraductal papillary mucinous neoplasm [Unknown]
  - Off label use [Unknown]
